FAERS Safety Report 7052925-9 (Version None)
Quarter: 2010Q4

REPORT INFORMATION
  Report Type: 
  Country: None (occurrence: None)
  Receive Date: 20101020
  Receipt Date: 20101012
  Transmission Date: 20110411
  Serious: Yes (Hospitalization)
  Sender: FDA-Public Use
  Company Number: US-BIOGENIDEC-2010BI027288

PATIENT
  Age: 20 Year
  Sex: Male

DRUGS (5)
  1. TYSABRI [Suspect]
     Indication: CROHN'S DISEASE
     Route: 042
     Dates: start: 20100708
  2. PREDNISONE [Concomitant]
  3. FOLIC ACID [Concomitant]
  4. IRON [Concomitant]
  5. IMODIUM [Concomitant]

REACTIONS (1)
  - ANAPHYLACTIC REACTION [None]
